FAERS Safety Report 12358615 (Version 1)
Quarter: 2016Q2

REPORT INFORMATION
  Report Type: Spontaneous
  Country: US (occurrence: US)
  Receive Date: 20160512
  Receipt Date: 20160512
  Transmission Date: 20160815
  Serious: No
  Sender: FDA-Public Use
  Company Number: US-PFIZER INC-2016216972

PATIENT

DRUGS (3)
  1. EMBEDA [Suspect]
     Active Substance: MORPHINE SULFATE\NALTREXONE HYDROCHLORIDE
     Dosage: ONLY TAKING ONE A DAY
  2. EMBEDA [Suspect]
     Active Substance: MORPHINE SULFATE\NALTREXONE HYDROCHLORIDE
     Dosage: INSTRUCTED TO CONTINUE THE MEDICATION AS PRESCRIBED/PRESCRIPTION FOR 50 MG BE BID
  3. AVINZA [Suspect]
     Active Substance: MORPHINE SULFATE
     Dosage: 120 MG, UNK

REACTIONS (4)
  - Hyperhidrosis [Unknown]
  - Intentional product misuse [Unknown]
  - Drug withdrawal syndrome [Unknown]
  - Dyspepsia [Unknown]
